FAERS Safety Report 6111262-7 (Version None)
Quarter: 2009Q1

REPORT INFORMATION
  Report Type: 
  Country: None (occurrence: None)
  Receive Date: 20090311
  Receipt Date: 20090305
  Transmission Date: 20090719
  Serious: Yes (Hospitalization)
  Sender: FDA-Public Use
  Company Number: JP-AVENTIS-200910479JP

PATIENT
  Age: 80 Year
  Sex: Male

DRUGS (6)
  1. LANTUS [Suspect]
     Indication: DIABETES MELLITUS
     Route: 058
  2. AMARYL [Suspect]
     Indication: DIABETES MELLITUS
     Route: 048
  3. PLAVIX [Suspect]
     Route: 048
     Dates: start: 20081227, end: 20081228
  4. FAMOTIDINE [Concomitant]
  5. ASPIRIN [Concomitant]
  6. MAGNESIUM OXIDE [Concomitant]

REACTIONS (1)
  - THROMBOCYTOPENIA [None]
